FAERS Safety Report 12378458 (Version 1)
Quarter: 2016Q2

REPORT INFORMATION
  Report Type: Spontaneous
  Country: US (occurrence: US)
  Receive Date: 20160517
  Receipt Date: 20160517
  Transmission Date: 20160815
  Serious: No
  Sender: FDA-Public Use
  Company Number: US-CELGENEUS-USA-2016053007

PATIENT
  Sex: Female
  Weight: 63.56 kg

DRUGS (8)
  1. REVLIMID [Suspect]
     Active Substance: LENALIDOMIDE
     Route: 048
     Dates: start: 201602
  2. REVLIMID [Suspect]
     Active Substance: LENALIDOMIDE
     Dosage: 10MG-25MG
     Route: 048
     Dates: start: 201306
  3. REVLIMID [Suspect]
     Active Substance: LENALIDOMIDE
     Indication: PLASMA CELL MYELOMA
     Route: 048
     Dates: start: 200906
  4. REVLIMID [Suspect]
     Active Substance: LENALIDOMIDE
     Dosage: 25MG-15MG
     Route: 048
     Dates: start: 20131014
  5. MAALOX ADVANCED [Concomitant]
     Route: 065
  6. VELCADE [Concomitant]
     Active Substance: BORTEZOMIB
     Route: 065
  7. AMLODIPINE BESYLATE. [Concomitant]
     Active Substance: AMLODIPINE BESYLATE
     Route: 065
  8. LOW DOSE ASPIRIN [Concomitant]
     Active Substance: ASPIRIN
     Dosage: 3.5 MILLIGRAM
     Route: 048

REACTIONS (1)
  - Seasonal allergy [Recovered/Resolved]
